FAERS Safety Report 25703537 (Version 1)
Quarter: 2025Q3

REPORT INFORMATION
  Report Type: Spontaneous
  Country: US (occurrence: US)
  Receive Date: 20250820
  Receipt Date: 20250820
  Transmission Date: 20251020
  Serious: No
  Sender: ELI LILLY AND COMPANY
  Company Number: US-ELI_LILLY_AND_COMPANY-US202508014346

PATIENT
  Age: 32 Year
  Sex: Female

DRUGS (15)
  1. ZEPBOUND [Suspect]
     Active Substance: TIRZEPATIDE
     Indication: Polycystic ovaries
     Dosage: 2.5 MG, WEEKLY (1/W)
     Route: 065
     Dates: start: 20250412
  2. ZEPBOUND [Suspect]
     Active Substance: TIRZEPATIDE
     Indication: Polycystic ovaries
     Dosage: 2.5 MG, WEEKLY (1/W)
     Route: 065
     Dates: start: 20250412
  3. ZEPBOUND [Suspect]
     Active Substance: TIRZEPATIDE
     Indication: Polycystic ovaries
     Dosage: 2.5 MG, WEEKLY (1/W)
     Route: 065
     Dates: start: 20250412
  4. ZEPBOUND [Suspect]
     Active Substance: TIRZEPATIDE
     Indication: Polycystic ovaries
     Dosage: 2.5 MG, WEEKLY (1/W)
     Route: 065
     Dates: start: 20250412
  5. ZEPBOUND [Suspect]
     Active Substance: TIRZEPATIDE
     Indication: Polycystic ovaries
     Dosage: 2.5 MG, WEEKLY (1/W)
     Route: 065
     Dates: start: 20250412
  6. ZEPBOUND [Suspect]
     Active Substance: TIRZEPATIDE
     Indication: Metabolic dysfunction-associated liver disease
     Dosage: 2.5 MG, WEEKLY (1/W)
     Route: 065
  7. ZEPBOUND [Suspect]
     Active Substance: TIRZEPATIDE
     Indication: Metabolic dysfunction-associated liver disease
     Dosage: 2.5 MG, WEEKLY (1/W)
     Route: 065
  8. ZEPBOUND [Suspect]
     Active Substance: TIRZEPATIDE
     Indication: Metabolic dysfunction-associated liver disease
     Dosage: 2.5 MG, WEEKLY (1/W)
     Route: 065
  9. ZEPBOUND [Suspect]
     Active Substance: TIRZEPATIDE
     Indication: Metabolic dysfunction-associated liver disease
     Dosage: 2.5 MG, WEEKLY (1/W)
     Route: 065
  10. ZEPBOUND [Suspect]
     Active Substance: TIRZEPATIDE
     Indication: Metabolic dysfunction-associated liver disease
     Dosage: 2.5 MG, WEEKLY (1/W)
     Route: 065
  11. ZEPBOUND [Suspect]
     Active Substance: TIRZEPATIDE
     Indication: Insulin resistance
  12. ZEPBOUND [Suspect]
     Active Substance: TIRZEPATIDE
     Indication: Insulin resistance
  13. ZEPBOUND [Suspect]
     Active Substance: TIRZEPATIDE
     Indication: Insulin resistance
  14. ZEPBOUND [Suspect]
     Active Substance: TIRZEPATIDE
     Indication: Insulin resistance
  15. ZEPBOUND [Suspect]
     Active Substance: TIRZEPATIDE
     Indication: Insulin resistance

REACTIONS (3)
  - Accidental underdose [Unknown]
  - Off label use [Unknown]
  - Injection site pain [Unknown]

NARRATIVE: CASE EVENT DATE: 20250412
